FAERS Safety Report 21324383 (Version 2)
Quarter: 2022Q4

REPORT INFORMATION
  Report Type: Spontaneous
  Country: US (occurrence: US)
  Receive Date: 20220912
  Receipt Date: 20221221
  Transmission Date: 20230113
  Serious: Yes (Other)
  Sender: FDA-Public Use
  Company Number: US-BRISTOL-MYERS SQUIBB COMPANY-2022-104246

PATIENT
  Age: 85 Year
  Sex: Male

DRUGS (4)
  1. REVLIMID [Suspect]
     Active Substance: LENALIDOMIDE
     Indication: Plasma cell myeloma
     Dosage: ONCE DAILY FOR 14 DAYS AND REPEAT EVERY 14 DAYS
     Route: 048
  2. REVLIMID [Suspect]
     Active Substance: LENALIDOMIDE
     Dosage: ONCE DAILY FOR 14 DAYS AND 14 DAYS OFF
     Route: 048
     Dates: start: 20220804
  3. REVLIMID [Suspect]
     Active Substance: LENALIDOMIDE
     Dosage: ONCE DAILY FOR 14 DAYS AND 14 DAYS OFF
     Route: 048
     Dates: start: 20221202
  4. VELCADE [Concomitant]
     Active Substance: BORTEZOMIB
     Indication: Product used for unknown indication

REACTIONS (6)
  - Fatigue [Unknown]
  - Dizziness [Unknown]
  - Gait disturbance [Unknown]
  - Off label use [Unknown]
  - Influenza [Unknown]
  - Respiratory distress [Unknown]

NARRATIVE: CASE EVENT DATE: 20220805
